FAERS Safety Report 23068170 (Version 1)
Quarter: 2023Q4

REPORT INFORMATION
  Report Type: Spontaneous
  Country: US (occurrence: US)
  Receive Date: 20231016
  Receipt Date: 20231016
  Transmission Date: 20240110
  Serious: Yes (Other)
  Sender: FDA-Public Use
  Company Number: US-GSKCCFUS-Case-01827152_AE-102160

PATIENT

DRUGS (1)
  1. NUCALA [Suspect]
     Active Substance: MEPOLIZUMAB
     Indication: Product used for unknown indication
     Dosage: UNK (CYC)
     Route: 058
     Dates: start: 202306

REACTIONS (3)
  - Thyroid neoplasm removal [Unknown]
  - Parathyroidectomy [Unknown]
  - Blood calcium increased [Unknown]
